FAERS Safety Report 15145496 (Version 1)
Quarter: 2018Q3

REPORT INFORMATION
  Report Type: Spontaneous
  Country: FR (occurrence: FR)
  Receive Date: 20180713
  Receipt Date: 20180713
  Transmission Date: 20181010
  Serious: Yes (Other)
  Sender: FDA-Public Use
  Company Number: FR-ALLERGAN-1834694US

PATIENT
  Age: 1 Day
  Sex: Male
  Weight: 3.13 kg

DRUGS (4)
  1. ALPHAGAN P [Suspect]
     Active Substance: BRIMONIDINE TARTRATE
     Indication: MATERNAL EXPOSURE TIMING UNSPECIFIED
     Route: 064
  2. COMBIGAN [Suspect]
     Active Substance: BRIMONIDINE TARTRATE\TIMOLOL MALEATE
     Indication: MATERNAL EXPOSURE TIMING UNSPECIFIED
     Route: 064
  3. LUMIGAN [Suspect]
     Active Substance: BIMATOPROST
     Indication: MATERNAL EXPOSURE TIMING UNSPECIFIED
     Dosage: 1 DF, UNK
     Route: 064
  4. VEXOL [Suspect]
     Active Substance: RIMEXOLONE
     Indication: MATERNAL EXPOSURE TIMING UNSPECIFIED
     Dosage: 2 DF, UNK
     Route: 064

REACTIONS (1)
  - Pyelocaliectasis [Recovered/Resolved]

NARRATIVE: CASE EVENT DATE: 20160120
